FAERS Safety Report 14789965 (Version 4)
Quarter: 2019Q1

REPORT INFORMATION
  Report Type: Spontaneous
  Country: US (occurrence: US)
  Receive Date: 20180423
  Receipt Date: 20190130
  Transmission Date: 20190417
  Serious: Yes (Other)
  Sender: FDA-Public Use
  Company Number: US-ASTRAZENECA-2018SE48907

PATIENT
  Age: 26392 Day
  Sex: Female
  Weight: 119.3 kg

DRUGS (60)
  1. PRILOSEC [Suspect]
     Active Substance: OMEPRAZOLE MAGNESIUM
     Dosage: 40.0MG UNKNOWN
     Route: 048
     Dates: start: 20080125, end: 2015
  2. LISINOPRIL. [Concomitant]
     Active Substance: LISINOPRIL
     Indication: BLOOD PRESSURE MEASUREMENT
     Dates: start: 20080407
  3. NAPROXEN. [Concomitant]
     Active Substance: NAPROXEN
     Dosage: 500.0MG UNKNOWN
     Route: 065
     Dates: start: 20080703
  4. DOXYCYCLINE HYCLATE. [Concomitant]
     Active Substance: DOXYCYCLINE HYCLATE
  5. LIPITOR [Concomitant]
     Active Substance: ATORVASTATIN CALCIUM
     Route: 048
  6. DICLOFENAC SODIUM. [Concomitant]
     Active Substance: DICLOFENAC SODIUM
     Indication: INFLAMMATION
     Dates: start: 20140906
  7. CRESTOR [Concomitant]
     Active Substance: ROSUVASTATIN CALCIUM
     Dates: start: 20150930
  8. RANITIDINE. [Concomitant]
     Active Substance: RANITIDINE
     Dosage: 300.0MG UNKNOWN
     Dates: start: 20150413
  9. JANUVIA [Concomitant]
     Active Substance: SITAGLIPTIN PHOSPHATE
  10. LEXAPRO [Concomitant]
     Active Substance: ESCITALOPRAM OXALATE
  11. LOVASTATIN. [Concomitant]
     Active Substance: LOVASTATIN
     Indication: BLOOD CHOLESTEROL
  12. LEVAQUIN [Concomitant]
     Active Substance: LEVOFLOXACIN
     Dates: start: 20101214
  13. PYRIDIUM [Concomitant]
     Active Substance: PHENAZOPYRIDINE
     Dates: start: 20101103
  14. CIPRO [Concomitant]
     Active Substance: CIPROFLOXACIN HYDROCHLORIDE
     Dates: start: 20101103
  15. METFORMIN [Concomitant]
     Active Substance: METFORMIN HYDROCHLORIDE
     Dates: start: 20101103
  16. TRAMADOL. [Concomitant]
     Active Substance: TRAMADOL
  17. ZESTRIL [Concomitant]
     Active Substance: LISINOPRIL
     Route: 048
  18. NEXIUM [Suspect]
     Active Substance: ESOMEPRAZOLE MAGNESIUM
     Route: 048
     Dates: start: 1995, end: 2015
  19. TYLENOL [Concomitant]
     Active Substance: ACETAMINOPHEN
     Indication: PAIN
     Route: 065
  20. VITAMIN D [Concomitant]
     Active Substance: CHOLECALCIFEROL
     Dates: start: 20140906
  21. CEPHALEXIN. [Concomitant]
     Active Substance: CEPHALEXIN
     Dosage: 500.0MG UNKNOWN
     Dates: start: 20111128
  22. GABAPENTIN. [Concomitant]
     Active Substance: GABAPENTIN
     Indication: NEUROPATHY PERIPHERAL
  23. FLONASE [Concomitant]
     Active Substance: FLUTICASONE PROPIONATE
     Dosage: 50 MCG
  24. FLAGYL [Concomitant]
     Active Substance: METRONIDAZOLE\METRONIDAZOLE HYDROCHLORIDE
     Dates: start: 20101103
  25. TAMIFLU [Concomitant]
     Active Substance: OSELTAMIVIR PHOSPHATE
  26. NEXIUM [Suspect]
     Active Substance: ESOMEPRAZOLE MAGNESIUM
     Route: 048
     Dates: start: 20080306, end: 2015
  27. DIFLUCAN [Concomitant]
     Active Substance: FLUCONAZOLE
  28. FUROSEMIDE. [Concomitant]
     Active Substance: FUROSEMIDE
     Route: 048
     Dates: start: 20150526
  29. CEFTIN [Concomitant]
     Active Substance: CEFUROXIME AXETIL
     Route: 048
     Dates: start: 20160105
  30. NEXIUM [Suspect]
     Active Substance: ESOMEPRAZOLE MAGNESIUM
     Route: 048
     Dates: start: 20100129
  31. PRILOSEC [Suspect]
     Active Substance: OMEPRAZOLE MAGNESIUM
     Route: 048
     Dates: start: 1995, end: 2015
  32. RANITIDIN [Concomitant]
     Active Substance: RANITIDINE HYDROCHLORIDE
     Dosage: 300 MG AT A BEDTIME
  33. LISINOPRIL. [Concomitant]
     Active Substance: LISINOPRIL
     Indication: BLOOD PRESSURE MEASUREMENT
     Route: 065
     Dates: start: 20100129
  34. AZITHROMYCIN ANHYDROUS. [Concomitant]
     Active Substance: AZITHROMYCIN ANHYDROUS
     Dosage: 250.0MG UNKNOWN
     Dates: start: 20101020
  35. CELEBREX [Concomitant]
     Active Substance: CELECOXIB
     Dosage: 200.0MG UNKNOWN
     Dates: start: 20110602
  36. ANUSOL-HC [Concomitant]
     Dates: start: 20101111
  37. RANITIDINE. [Concomitant]
     Active Substance: RANITIDINE
     Route: 048
     Dates: start: 20160413, end: 20170413
  38. DOXYCYCLINE HYCLATE. [Concomitant]
     Active Substance: DOXYCYCLINE HYCLATE
     Route: 048
     Dates: start: 20140303
  39. DEXILANT [Suspect]
     Active Substance: DEXLANSOPRAZOLE
     Route: 065
     Dates: start: 2008
  40. GABAPENTIN. [Concomitant]
     Active Substance: GABAPENTIN
     Indication: NEUROPATHY PERIPHERAL
     Dates: start: 20140906
  41. DETROL [Concomitant]
     Active Substance: TOLTERODINE TARTRATE
     Dates: start: 20140916
  42. ZETIA [Concomitant]
     Active Substance: EZETIMIBE
  43. VESICARE [Concomitant]
     Active Substance: SOLIFENACIN SUCCINATE
  44. GLIPIZIDE. [Concomitant]
     Active Substance: GLIPIZIDE
  45. SANCTURA [Concomitant]
     Active Substance: TROSPIUM CHLORIDE
  46. PROMETHAZINE HYDROCHLORIDE. [Concomitant]
     Active Substance: PROMETHAZINE HYDROCHLORIDE
     Dosage: AS NEEDED
  47. MEDROL [Concomitant]
     Active Substance: METHYLPREDNISOLONE
     Dates: start: 20101020
  48. CIPROFLOXACIN. [Concomitant]
     Active Substance: CIPROFLOXACIN
     Route: 048
  49. NEXIUM [Suspect]
     Active Substance: ESOMEPRAZOLE MAGNESIUM
     Dosage: 1 CAPSULE ONCE A DAY-PRN
     Route: 048
     Dates: start: 20160302
  50. IBUPROFEN. [Concomitant]
     Active Substance: IBUPROFEN
     Dosage: 800.0MG UNKNOWN
     Dates: start: 20160311
  51. DUONEB [Concomitant]
     Active Substance: ALBUTEROL SULFATE\IPRATROPIUM BROMIDE
     Dosage: 3 MG/ 3ML EVERY FOUR HOUR
  52. LORCET [Concomitant]
     Active Substance: ACETAMINOPHEN\HYDROCODONE BITARTRATE
     Dosage: 10-650 MG TWO TIMES A DAY
     Dates: start: 20100129
  53. VENTOLIN [Concomitant]
     Active Substance: ALBUTEROL SULFATE
     Dosage: 2 PUFFS UP TO EVERY 4 HOURS AS NEEDED
  54. NEXIUM [Suspect]
     Active Substance: ESOMEPRAZOLE MAGNESIUM
     Route: 048
     Dates: start: 20160127
  55. DEXILANT [Suspect]
     Active Substance: DEXLANSOPRAZOLE
     Route: 048
     Dates: start: 20161019
  56. LASIX [Concomitant]
     Active Substance: FUROSEMIDE
     Indication: BLOOD PRESSURE MEASUREMENT
     Route: 065
     Dates: start: 20140906
  57. FLEXERIL [Concomitant]
     Active Substance: CYCLOBENZAPRINE HYDROCHLORIDE
  58. OXYCODONE - ACETAMINOPHEN [Concomitant]
     Active Substance: ACETAMINOPHEN\OXYCODONE HYDROCHLORIDE
     Dosage: 5-325 MG
     Dates: start: 20101103
  59. DICLOFENAC SODIUM. [Concomitant]
     Active Substance: DICLOFENAC SODIUM
     Route: 048
     Dates: start: 20150428
  60. IBUPROFEN. [Concomitant]
     Active Substance: IBUPROFEN
     Route: 048

REACTIONS (6)
  - Renal failure [Unknown]
  - Chronic kidney disease [Not Recovered/Not Resolved]
  - Tubulointerstitial nephritis [Unknown]
  - Renal disorder [Unknown]
  - End stage renal disease [Unknown]
  - Acute kidney injury [Unknown]

NARRATIVE: CASE EVENT DATE: 20150623
